FAERS Safety Report 8165414-5 (Version None)
Quarter: 2012Q1

REPORT INFORMATION
  Report Type: 
  Country: None (occurrence: None)
  Receive Date: 20120227
  Receipt Date: 20120215
  Transmission Date: 20120608
  Serious: Yes (Hospitalization, Other)
  Sender: FDA-Public Use
  Company Number: US-BAYER-2011-049798

PATIENT
  Age: 25 Year
  Sex: Female
  Weight: 60.317 kg

DRUGS (6)
  1. CIPRO [Concomitant]
     Indication: URINARY TRACT INFECTION
     Dosage: UNK
     Route: 048
     Dates: start: 20070627, end: 20070720
  2. FLEXERIL [Concomitant]
     Indication: CHEST PAIN
     Dosage: 10 MG, UNK
     Route: 048
     Dates: start: 20070720, end: 20070725
  3. YASMIN [Suspect]
     Indication: CONTRACEPTION
     Dosage: UNK
     Route: 048
     Dates: start: 20070219, end: 20070807
  4. IBUPROFEN [Concomitant]
     Indication: MUSCLE STRAIN
  5. FLEXERIL [Concomitant]
     Indication: MUSCLE STRAIN
  6. IBUPROFEN [Concomitant]
     Indication: CHEST PAIN
     Dosage: 800 MG, PRN
     Route: 048
     Dates: start: 20070720, end: 20070725

REACTIONS (12)
  - GENERAL PHYSICAL HEALTH DETERIORATION [None]
  - PELVIC VENOUS THROMBOSIS [None]
  - ANXIETY [None]
  - MUSCLE SPASMS [None]
  - LIMB DISCOMFORT [None]
  - PAIN [None]
  - DEEP VEIN THROMBOSIS [None]
  - EMOTIONAL DISTRESS [None]
  - THROMBOPHLEBITIS [None]
  - PAIN IN EXTREMITY [None]
  - PULMONARY EMBOLISM [None]
  - OEDEMA PERIPHERAL [None]
